FAERS Safety Report 21518510 (Version 1)
Quarter: 2022Q4

REPORT INFORMATION
  Report Type: Spontaneous
  Country: IT (occurrence: IT)
  Receive Date: 20221028
  Receipt Date: 20221028
  Transmission Date: 20230113
  Serious: Yes (Hospitalization)
  Sender: FDA-Public Use
  Company Number: None

PATIENT
  Age: 75 Year
  Sex: Male
  Weight: 60 kg

DRUGS (10)
  1. CLOZAPINE [Suspect]
     Active Substance: CLOZAPINE
     Indication: Parkinsonism
     Dosage: 100 MILLIGRAM DAILY;  CLOZAPINE 100 MG / DAY (ADMINISTERED VIA PEG - PERCUTANEOUS ENDOSCOPIC GASTROS
     Dates: start: 20220801, end: 20220903
  2. PIPERACILLIN SODIUM\TAZOBACTAM SODIUM [Suspect]
     Active Substance: PIPERACILLIN SODIUM\TAZOBACTAM SODIUM
     Indication: Pneumonitis
     Dosage: 13.5 GRAM DAILY; 13.5 G / DAY , PIPERACILLINA E TAZOBACTAM KABI , DURATION : 4 DAY
     Dates: start: 20220830, end: 20220903
  3. ASPIRIN DL-LYSINE [Concomitant]
     Active Substance: ASPIRIN DL-LYSINE
     Indication: Hypertension
     Dosage: 100 MILLIGRAM DAILY; 100 MG / DAY (ADMINISTERED VIA PEG)
  4. DIAZEPAM [Concomitant]
     Active Substance: DIAZEPAM
     Indication: Mixed anxiety and depressive disorder
     Dosage: 5 MG / 22GTT / DAY (PEG)
  5. TIROSINT [Concomitant]
     Active Substance: LEVOTHYROXINE SODIUM
     Indication: Hypothyroidism
     Dosage: 75 MICROGRAM DAILY; 75 MCG / DAY (ADMINISTERED VIA PEG)
  6. MIRTAZAPINE [Concomitant]
     Active Substance: MIRTAZAPINE
     Indication: Parkinsonism
     Dosage: 30 MILLIGRAM DAILY; 30 MG / DAY
  7. LORAZEPAM [Concomitant]
     Active Substance: LORAZEPAM
     Indication: Mixed anxiety and depressive disorder
     Dosage: 2 MG / 15 GTT / DAY (PEG)
  8. BENSERAZIDE HYDROCHLORIDE\LEVODOPA [Concomitant]
     Active Substance: BENSERAZIDE HYDROCHLORIDE\LEVODOPA
     Indication: Parkinsonism
     Dosage: 562.5 MILLIGRAM DAILY; 562.5 MG / DAY (PEG)
     Dates: start: 2019
  9. LANSOPRAZOLE [Concomitant]
     Active Substance: LANSOPRAZOLE
     Indication: Gastrooesophageal reflux disease
     Dosage: 20 MILLIGRAM DAILY; 20 MG / DAY (PEG)
  10. ESCITALOPRAM [Concomitant]
     Active Substance: ESCITALOPRAM OXALATE
     Indication: Depression
     Dosage: 20 MG / 24GTT / DAY (PEG)

REACTIONS (3)
  - Leukopenia [Recovered/Resolved]
  - Pneumonitis [Recovered/Resolved]
  - Neutropenia [Recovered/Resolved]

NARRATIVE: CASE EVENT DATE: 20220829
